FAERS Safety Report 15852154 (Version 1)
Quarter: 2019Q1

REPORT INFORMATION
  Report Type: Report from Study
  Country: EG (occurrence: EG)
  Receive Date: 20190122
  Receipt Date: 20190122
  Transmission Date: 20190417
  Serious: Yes (Hospitalization)
  Sender: FDA-Public Use
  Company Number: EG-SA-2018SA389489

PATIENT
  Age: 11 Year
  Sex: Female

DRUGS (2)
  1. NOVORAPID [Concomitant]
     Active Substance: INSULIN ASPART
     Indication: TYPE 1 DIABETES MELLITUS
     Dosage: 7-12-0 I.U, BID, WITH A MEAL
  2. INSULIN GLARGINE [Suspect]
     Active Substance: INSULIN GLARGINE
     Indication: TYPE 1 DIABETES MELLITUS
     Dosage: 14 IU, QD
     Route: 058
     Dates: start: 201607

REACTIONS (9)
  - Acetonaemia [Not Recovered/Not Resolved]
  - Hyperglycaemia [Recovered/Resolved]
  - Blood glucose increased [Not Recovered/Not Resolved]
  - Influenza [Not Recovered/Not Resolved]
  - Abdominal pain upper [Not Recovered/Not Resolved]
  - Stress [Unknown]
  - Glycosylated haemoglobin increased [Not Recovered/Not Resolved]
  - Urine ketone body present [Not Recovered/Not Resolved]
  - Laziness [Recovered/Resolved]

NARRATIVE: CASE EVENT DATE: 2016
